FAERS Safety Report 6066160-4 (Version None)
Quarter: 2009Q1

REPORT INFORMATION
  Report Type: 
  Country: None (occurrence: None)
  Receive Date: 20090130
  Receipt Date: 20090120
  Transmission Date: 20090719
  Serious: Yes (Hospitalization)
  Sender: FDA-Public Use
  Company Number: 2009PL000028

PATIENT
  Age: 30 Year
  Sex: Male
  Weight: 91 kg

DRUGS (10)
  1. AZATHIOPRINE [Suspect]
     Indication: CROHN'S DISEASE
     Dosage: 200 MG, QD; PO
     Route: 048
     Dates: start: 20070713
  2. AZATHIOPRINE [Suspect]
     Indication: CROHN'S DISEASE
     Dosage: 200 MG, QD; PO
     Route: 048
     Dates: start: 20070713
  3. INFLIXIMAB, RECOMBINANT (INFLIXIMAB, RECOMBINANT) LYOPHILIZED POWDER ( [Suspect]
     Indication: CROHN'S DISEASE
     Dosage: 5 MG/KG, QD; IV
     Route: 042
     Dates: start: 20070731
  4. PANTOZOL [Concomitant]
  5. MESALAZINE [Concomitant]
  6. AMOXICILLIN [Concomitant]
  7. ZYRTEC [Concomitant]
  8. TIBERAL [Concomitant]
  9. VENORUTON [Concomitant]
  10. MOTILLUM [Concomitant]

REACTIONS (7)
  - ASTHENIA [None]
  - COLITIS ULCERATIVE [None]
  - DIARRHOEA [None]
  - HEART RATE INCREASED [None]
  - HYPOTENSION [None]
  - PALPITATIONS [None]
  - PSEUDOMEMBRANOUS COLITIS [None]
